FAERS Safety Report 11745810 (Version 1)
Quarter: 2015Q4

REPORT INFORMATION
  Report Type: Spontaneous
  Country: US (occurrence: None)
  Receive Date: 20151116
  Receipt Date: 20151116
  Transmission Date: 20160304
  Serious: Yes (Other)
  Sender: FDA-Public Use
  Company Number: None

PATIENT
  Age: 7 Year
  Sex: Male
  Weight: 22.68 kg

DRUGS (3)
  1. LORATADINE. [Suspect]
     Active Substance: LORATADINE
     Indication: MULTIPLE ALLERGIES
  2. IBUPROFEN. [Concomitant]
     Active Substance: IBUPROFEN
  3. LORATADINE. [Concomitant]
     Active Substance: LORATADINE

REACTIONS (6)
  - Jaw disorder [None]
  - Swelling [None]
  - Gingival swelling [None]
  - Gingival pain [None]
  - Gingival hyperplasia [None]
  - Gingivitis [None]

NARRATIVE: CASE EVENT DATE: 20151113
